FAERS Safety Report 4560657-1 (Version None)
Quarter: 2005Q1

REPORT INFORMATION
  Report Type: 
  Country: None (occurrence: None)
  Receive Date: 20050121
  Receipt Date: 20050112
  Transmission Date: 20050727
  Serious: Yes (Other)
  Sender: FDA-Public Use
  Company Number: 2005-01-0671

PATIENT
  Sex: Female

DRUGS (1)
  1. INTRON A [Suspect]
     Indication: NON-HODGKIN'S LYMPHOMA
     Dosage: 3 MIU TIW SUBCUTANEOUS
     Route: 058
     Dates: start: 20040101

REACTIONS (3)
  - IRIDOCYCLITIS [None]
  - UVEITIS [None]
  - VITREOUS OPACITIES [None]
